FAERS Safety Report 6443682-5 (Version None)
Quarter: 2009Q4

REPORT INFORMATION
  Report Type: 
  Country: None (occurrence: None)
  Receive Date: 20091117
  Receipt Date: 20091113
  Transmission Date: 20100525
  Serious: Yes (Death)
  Sender: FDA-Public Use
  Company Number: ES-ABBOTT-09P-144-0575843-00

PATIENT
  Sex: Female
  Weight: 78.2 kg

DRUGS (6)
  1. SIBUTRAMINE [Suspect]
     Indication: OBESITY
     Route: 048
     Dates: start: 20031016, end: 20041009
  2. METFORMIN HCL [Concomitant]
     Indication: TYPE 2 DIABETES MELLITUS
     Dates: end: 20041009
  3. INSULINE [Concomitant]
     Indication: TYPE 2 DIABETES MELLITUS
     Dates: end: 20041009
  4. ALTERIDE [Concomitant]
     Indication: HYPERTENSION
     Dates: end: 20041009
  5. AAS [Concomitant]
     Indication: THROMBOSIS PROPHYLAXIS
     Dates: start: 19990101, end: 20041009
  6. PREVUCOR [Concomitant]
     Indication: DYSLIPIDAEMIA
     Dates: end: 20041009

REACTIONS (1)
  - CARDIAC FAILURE CONGESTIVE [None]
